FAERS Safety Report 6957622-3 (Version None)
Quarter: 2010Q3

REPORT INFORMATION
  Report Type: 
  Country: None (occurrence: None)
  Receive Date: 20100831
  Receipt Date: 20100818
  Transmission Date: 20110219
  Serious: Yes (Hospitalization)
  Sender: FDA-Public Use
  Company Number: FR-ELI_LILLY_AND_COMPANY-FR201008004880

PATIENT
  Sex: Female

DRUGS (5)
  1. ZYPREXA [Suspect]
     Indication: BIPOLAR DISORDER
     Dosage: 20 MG, DAILY (1/D)
     Route: 048
     Dates: start: 20100430, end: 20100628
  2. TEGRETOL [Concomitant]
     Indication: BIPOLAR DISORDER
     Dosage: 400 MG, DAILY (1/D)
     Route: 048
     Dates: start: 20100507, end: 20100625
  3. MEPRONIZINE [Concomitant]
     Indication: BIPOLAR DISORDER
     Dosage: UNK, UNKNOWN
     Route: 048
     Dates: start: 20100512, end: 20100628
  4. LYSANXIA [Concomitant]
     Indication: BIPOLAR DISORDER
     Dosage: 10 MG, 3/D
     Route: 048
  5. RASILEZ [Concomitant]
     Indication: HYPERTENSION
     Dosage: 150 MG, DAILY (1/D)
     Route: 048
     Dates: start: 20100427, end: 20100628

REACTIONS (4)
  - DRUG RASH WITH EOSINOPHILIA AND SYSTEMIC SYMPTOMS [None]
  - EPSTEIN-BARR VIRUS INFECTION [None]
  - HEPATIC FAILURE [None]
  - HEPATITIS A VIRUS TEST POSITIVE [None]
